FAERS Safety Report 8490388-7 (Version None)
Quarter: 2012Q3

REPORT INFORMATION
  Report Type: 
  Country: None (occurrence: None)
  Receive Date: 20120705
  Receipt Date: 20120702
  Transmission Date: 20120928
  Serious: Yes (Other)
  Sender: FDA-Public Use
  Company Number: US-PFIZER INC-2012125203

PATIENT
  Sex: Female
  Weight: 113.38 kg

DRUGS (2)
  1. LYRICA [Suspect]
     Dosage: 150 MG, 1X/DAY
     Dates: start: 20120501
  2. LYRICA [Suspect]
     Indication: FIBROMYALGIA
     Dosage: TWO 75MG CAPSULES AT BEDTIME, ONCE A DAY
     Route: 048
     Dates: start: 20110101, end: 20120401

REACTIONS (8)
  - WEIGHT INCREASED [None]
  - INSOMNIA [None]
  - JOINT SWELLING [None]
  - DIABETES MELLITUS [None]
  - DYSURIA [None]
  - OEDEMA PERIPHERAL [None]
  - LETHARGY [None]
  - PAIN [None]
